FAERS Safety Report 11767095 (Version 1)
Quarter: 2015Q4

REPORT INFORMATION
  Report Type: Spontaneous
  Country: IL (occurrence: IL)
  Receive Date: 20151123
  Receipt Date: 20151123
  Transmission Date: 20160304
  Serious: Yes (Other)
  Sender: FDA-Public Use
  Company Number: IL-ACTAVIS-2015-25234

PATIENT
  Age: 37 Year
  Sex: Female

DRUGS (3)
  1. FOLINIC ACID [Concomitant]
     Active Substance: LEUCOVORIN
     Indication: RECTAL CANCER
     Dosage: 12- COURSE REGIMEN OF FOLFOX
     Route: 065
  2. FLUOROURACIL. [Concomitant]
     Active Substance: FLUOROURACIL
     Indication: RECTAL CANCER
     Dosage: 12- COURSE REGIMEN OF FOLFOX
     Route: 065
  3. OXALIPLATIN (UNKNOWN) [Suspect]
     Active Substance: OXALIPLATIN
     Indication: RECTAL CANCER
     Dosage: 12 COURSE REGIMEN OF FOLFOX
     Route: 065

REACTIONS (1)
  - Focal nodular hyperplasia [Unknown]
